FAERS Safety Report 11491369 (Version 2)
Quarter: 2015Q4

REPORT INFORMATION
  Report Type: Spontaneous
  Country: PL (occurrence: PL)
  Receive Date: 20150910
  Receipt Date: 20151106
  Transmission Date: 20160304
  Serious: Yes (Other)
  Sender: FDA-Public Use
  Company Number: PL-TAKEDA-2015MPI005968

PATIENT

DRUGS (9)
  1. THALIDOMIDE [Suspect]
     Active Substance: THALIDOMIDE
     Indication: PLASMA CELL MYELOMA
     Dosage: 100 MG, UNK
     Route: 065
     Dates: start: 20150130, end: 2015
  2. TRITACE [Concomitant]
     Active Substance: RAMIPRIL
     Dosage: 2.5 MG, QD
     Route: 065
  3. THALIDOMIDE [Suspect]
     Active Substance: THALIDOMIDE
     Dosage: 100 MG, UNK
     Route: 065
     Dates: start: 20150522, end: 20150524
  4. ACARD [Concomitant]
     Active Substance: ASPIRIN
     Dosage: 75 MG, QD
     Route: 065
  5. VELCADE [Suspect]
     Active Substance: BORTEZOMIB
     Indication: PLASMA CELL MYELOMA
     Dosage: 2.5 MG, UNK
     Route: 065
     Dates: start: 20150130, end: 2015
  6. DEXAMETHASONE. [Suspect]
     Active Substance: DEXAMETHASONE
     Dosage: 40 MG, UNK
     Route: 065
     Dates: start: 20150522, end: 20150524
  7. VELCADE [Suspect]
     Active Substance: BORTEZOMIB
     Dosage: 2.5 MG, UNK
     Route: 065
     Dates: start: 20150522, end: 20150522
  8. DEXAMETHASONE. [Suspect]
     Active Substance: DEXAMETHASONE
     Indication: PLASMA CELL MYELOMA
     Dosage: 40 MG, UNK
     Route: 065
     Dates: start: 20150130, end: 2015
  9. DIOSMINE [Concomitant]
     Active Substance: HESPERIDIN
     Dosage: UNK, BID
     Route: 065

REACTIONS (1)
  - Neurogenic bladder [Recovered/Resolved]

NARRATIVE: CASE EVENT DATE: 20150508
